FAERS Safety Report 6431195-6 (Version None)
Quarter: 2009Q4

REPORT INFORMATION
  Report Type: 
  Country: None (occurrence: None)
  Receive Date: 20091106
  Receipt Date: 20091103
  Transmission Date: 20100525
  Serious: Yes (Death)
  Sender: FDA-Public Use
  Company Number: KR-JNJFOC-20091101667

PATIENT
  Sex: Female

DRUGS (4)
  1. RISPERIDONE CONSTA [Suspect]
     Indication: PSYCHOTIC DISORDER
     Route: 065
  2. ARIPIPRAZOLE [Suspect]
     Route: 065
  3. ARIPIPRAZOLE [Suspect]
     Indication: DRUG USE FOR UNKNOWN INDICATION
     Route: 065
  4. RISPERIDONE [Suspect]
     Indication: PSYCHOTIC DISORDER
     Route: 065

REACTIONS (3)
  - COMPLETED SUICIDE [None]
  - METABOLIC SYNDROME [None]
  - PSYCHOTIC DISORDER [None]
